FAERS Safety Report 19825655 (Version 1)
Quarter: 2021Q3

REPORT INFORMATION
  Report Type: Spontaneous
  Country: NL (occurrence: NL)
  Receive Date: 20210914
  Receipt Date: 20210914
  Transmission Date: 20211014
  Serious: Yes (Hospitalization)
  Sender: FDA-Public Use
  Company Number: NL-TEVA-2021-NL-1951292

PATIENT
  Age: 85 Year
  Sex: Male
  Weight: 67 kg

DRUGS (11)
  1. NEBIVOLOL TABLET 5MG / BRAND NAME NOT SPECIFIED [Concomitant]
     Active Substance: NEBIVOLOL
     Dosage: 5 MG (MILLIGRAM) , THERAPY START DATE AND END DATE : ASKU
  2. LOPERAMIDE CAPSULE 2MG / BRAND NAME NOT SPECIFIED [Concomitant]
     Dosage: 2 MG (MILLIGRAM) , THERAPY START DATE AND END DATE : ASKU
  3. ACETYLSALICYLZUUR TABLET  80MG / BRAND NAME NOT SPECIFIED [Concomitant]
     Active Substance: ASPIRIN
     Dosage: 80 MG (MILLIGRAM) ,THERAPY START DATE AND END DATE : ASKU
  4. DARBEPOETINE ALFA INJVLST  40UG/ML / ARANESP   20 INJVLST  40MCG/ML WW [Concomitant]
     Dosage: 40 UG/ML (MICROGRAM PER MILLILITER) ,THERAPY START DATE AND END DATE : ASKU
  5. PARACETAMOL TABLET  500MG / BRAND NAME NOT SPECIFIED [Concomitant]
     Dosage: 500 MG (MILLIGRAM) , THERAPY START DATE AND END DATE : ASKU
  6. VALACYCLOVIR [Suspect]
     Active Substance: VALACYCLOVIR HYDROCHLORIDE
     Indication: HERPES ZOSTER
     Dosage: 500 MILLIGRAM DAILY;
     Dates: start: 20210817, end: 20210820
  7. SEVELAMEER TABLET 800MG (CARBONAAT) / BRAND NAME NOT SPECIFIED [Concomitant]
     Active Substance: SEVELAMER
     Dosage: 800 MG (MILLIGRAM) , THERAPY START DATE AND END DATE : ASKU
  8. ALFACALCIDOL CAPSULE 0,25UG / BRAND NAME NOT SPECIFIED [Concomitant]
     Dosage: 0,25 UG (MICROGRAM) , THERAPY START DATE AND END DATE : ASKU
  9. OMEPRAZOL CAPSULE MSR 40MG / BRAND NAME NOT SPECIFIED [Concomitant]
     Active Substance: OMEPRAZOLE
     Dosage: 40 MG (MILLIGRAM) , THERAPY START DATE AND END DATE : ASKU
  10. LANTHAANCARBONAAT KAUWTABLET 1000MG / FOSRENOL KAUWTABLET 1000MG [Concomitant]
     Dosage: 1000 MG (MILLIGRAM) , THERAPY START DATE AND END DATE : ASKU
  11. ATORVASTATINE TABLET 40MG / BRAND NAME NOT SPECIFIED [Concomitant]
     Active Substance: ATORVASTATIN
     Dosage: 40 MG (MILLIGRAM) ,THERAPY START DATE AND END DATE : ASKU

REACTIONS (1)
  - Delirium [Recovered/Resolved]

NARRATIVE: CASE EVENT DATE: 20210819
